FAERS Safety Report 8024148-8 (Version None)
Quarter: 2012Q1

REPORT INFORMATION
  Report Type: 
  Country: None (occurrence: None)
  Receive Date: 20120103
  Receipt Date: 20111222
  Transmission Date: 20120608
  Serious: Yes (Hospitalization)
  Sender: FDA-Public Use
  Company Number: 2011MA017860

PATIENT
  Age: 87 Year
  Sex: Female
  Weight: 58.9676 kg

DRUGS (8)
  1. PROCARDIA [Concomitant]
  2. PROZAC [Concomitant]
  3. FUROSEMIDE [Concomitant]
  4. ACETAMINOPHEN [Concomitant]
  5. XANAX [Concomitant]
  6. ASPIRIN [Concomitant]
  7. MULTI-VITAMIN [Concomitant]
  8. NIFEDIPINE [Suspect]
     Indication: HYPERTENSION
     Dosage: 30 MG;QD;PO
     Route: 048
     Dates: start: 20111001, end: 20111001

REACTIONS (2)
  - PRODUCT SUBSTITUTION ISSUE [None]
  - MALIGNANT HYPERTENSION [None]
